FAERS Safety Report 5934838-6 (Version None)
Quarter: 2008Q4

REPORT INFORMATION
  Report Type: 
  Country: None (occurrence: None)
  Receive Date: 20081027
  Receipt Date: 20081020
  Transmission Date: 20090506
  Serious: Yes (Other)
  Sender: FDA-Public Use
  Company Number: 2008AL011326

PATIENT
  Sex: Female

DRUGS (1)
  1. DIGOXIN [Suspect]
     Indication: CARDIAC OPERATION
     Dosage: PO
     Route: 048

REACTIONS (11)
  - ANHEDONIA [None]
  - ANXIETY [None]
  - CARDIAC PACEMAKER INSERTION [None]
  - DIZZINESS [None]
  - FATIGUE [None]
  - IRRITABILITY [None]
  - MULTIPLE INJURIES [None]
  - NAUSEA [None]
  - PAIN [None]
  - THERAPEUTIC AGENT TOXICITY [None]
  - VOMITING [None]
